FAERS Safety Report 10646099 (Version 1)
Quarter: 2014Q4

REPORT INFORMATION
  Report Type: Spontaneous
  Country: DK (occurrence: DE)
  Receive Date: 20141211
  Receipt Date: 20141211
  Transmission Date: 20150529
  Serious: Yes (Congenital Anomaly)
  Sender: FDA-Public Use
  Company Number: DE-FRI-1000072887

PATIENT
  Age: 0 Year
  Sex: Male
  Weight: 2.1 kg

DRUGS (4)
  1. CENTRUM MATERNA [Concomitant]
     Dosage: 0.4 MG
     Route: 064
     Dates: start: 20130913, end: 20140207
  2. CITALOPRAM [Suspect]
     Active Substance: CITALOPRAM HYDROBROMIDE
     Dosage: 40 MG
     Route: 064
     Dates: start: 20130913
  3. CITALOPRAM [Suspect]
     Active Substance: CITALOPRAM HYDROBROMIDE
     Dosage: 40 MG
     Route: 064
     Dates: end: 20140207
  4. CEFUROXIME. [Concomitant]
     Active Substance: CEFUROXIME
     Route: 064
     Dates: start: 20140515, end: 20140515

REACTIONS (4)
  - Brain malformation [Not Recovered/Not Resolved]
  - Head circumference abnormal [Recovered/Resolved]
  - Foetal exposure during pregnancy [Not Recovered/Not Resolved]
  - Premature baby [Unknown]

NARRATIVE: CASE EVENT DATE: 20130913
